FAERS Safety Report 6158997-8 (Version None)
Quarter: 2009Q2

REPORT INFORMATION
  Report Type: 
  Country: None (occurrence: None)
  Receive Date: 20090410
  Receipt Date: 20090401
  Transmission Date: 20091009
  Serious: Yes (Other)
  Sender: FDA-Public Use
  Company Number: AECAN200900002

PATIENT
  Age: 76 Year
  Sex: Male
  Weight: 84 kg

DRUGS (2)
  1. IMMUNE GLOBULIN INTRAVENOUS (HUMAN) [Suspect]
     Indication: PROSTATE CANCER METASTATIC
     Dosage: 20 GM; IV
     Route: 042
     Dates: start: 20081224, end: 20081224
  2. IMMUNE GLOBULIN INTRAVENOUS (HUMAN) [Suspect]
     Indication: THROMBOCYTOPENIA
     Dosage: 20 GM; IV
     Route: 042
     Dates: start: 20081224, end: 20081224

REACTIONS (3)
  - BLOOD CULTURE POSITIVE [None]
  - ESCHERICHIA INFECTION [None]
  - FEBRILE NONHAEMOLYTIC TRANSFUSION REACTION [None]
